FAERS Safety Report 25805748 (Version 1)
Quarter: 2025Q3

REPORT INFORMATION
  Report Type: Spontaneous
  Country: US (occurrence: US)
  Receive Date: 20250916
  Receipt Date: 20250916
  Transmission Date: 20251020
  Serious: Yes (Life-Threatening, Hospitalization, Other)
  Sender: PROVEPHARM
  Company Number: US-Provepharm-2184602

PATIENT
  Age: 48 Year
  Sex: Male

DRUGS (2)
  1. PROVAYBLUE [Suspect]
     Active Substance: METHYLENE BLUE
     Indication: Hypotension
  2. Vasoactive and inotropic agents (unspecified) [Concomitant]

REACTIONS (3)
  - Haemolytic anaemia [Unknown]
  - Product use in unapproved indication [Unknown]
  - Methaemoglobinaemia [Unknown]
